FAERS Safety Report 4725981-8 (Version None)
Quarter: 2005Q3

REPORT INFORMATION
  Report Type: 
  Country: None (occurrence: None)
  Receive Date: 20050727
  Receipt Date: 20050720
  Transmission Date: 20060218
  Serious: Yes (Hospitalization)
  Sender: FDA-Public Use
  Company Number: J200502396

PATIENT
  Age: 31 Year
  Sex: Male

DRUGS (1)
  1. CEFAZOLIN [Suspect]
     Indication: UPPER RESPIRATORY TRACT INFLAMMATION
     Dosage: 2G PER DAY
     Route: 042
     Dates: start: 20050704, end: 20050704

REACTIONS (4)
  - BLOOD PRESSURE DECREASED [None]
  - BRONCHOSTENOSIS [None]
  - FACE OEDEMA [None]
  - SHOCK [None]
